FAERS Safety Report 8443583-7 (Version None)
Quarter: 2012Q2

REPORT INFORMATION
  Report Type: 
  Country: None (occurrence: None)
  Receive Date: 20120618
  Receipt Date: 20120615
  Transmission Date: 20120825
  Serious: No
  Sender: FDA-Public Use
  Company Number: US-PFIZER INC-2012145066

PATIENT
  Sex: Female
  Weight: 65.76 kg

DRUGS (2)
  1. GEODON [Suspect]
     Indication: INSOMNIA
     Dosage: 40 MG, 1X/DAY
     Route: 048
     Dates: start: 20110101
  2. GEODON [Suspect]
     Indication: BIPOLAR DISORDER
     Dosage: 80 MG, 1X/DAY
     Route: 048
     Dates: start: 20100101, end: 20110101

REACTIONS (3)
  - MUSCLE SPASMS [None]
  - TREMOR [None]
  - ALOPECIA [None]
